FAERS Safety Report 19146881 (Version 3)
Quarter: 2021Q2

REPORT INFORMATION
  Report Type: Spontaneous
  Country: JP (occurrence: JP)
  Receive Date: 20210416
  Receipt Date: 20210524
  Transmission Date: 20210717
  Serious: Yes (Hospitalization, Other)
  Sender: FDA-Public Use
  Company Number: JP-JNJFOC-20210421794

PATIENT
  Age: 58 Year
  Sex: Female

DRUGS (1)
  1. TRACLEER [Suspect]
     Active Substance: BOSENTAN
     Indication: PULMONARY ARTERIAL HYPERTENSION
     Dosage: BOSENTAN HYDRATE:62.5MG
     Route: 048
     Dates: start: 20200516

REACTIONS (3)
  - Hospitalisation [Unknown]
  - Renal failure [Not Recovered/Not Resolved]
  - Interstitial lung disease [Unknown]

NARRATIVE: CASE EVENT DATE: 202102
